FAERS Safety Report 7179931-8 (Version None)
Quarter: 2010Q4

REPORT INFORMATION
  Report Type: 
  Country: None (occurrence: None)
  Receive Date: 20101221
  Receipt Date: 20101210
  Transmission Date: 20110411
  Serious: Yes (Other)
  Sender: FDA-Public Use
  Company Number: AT-ACTELION-A-CH2010-42624

PATIENT

DRUGS (1)
  1. TRACLEER [Suspect]
     Dosage: UNK , UNK
     Route: 048
     Dates: end: 20090630

REACTIONS (1)
  - HEPATIC CIRRHOSIS [None]
